FAERS Safety Report 24111846 (Version 2)
Quarter: 2024Q3

REPORT INFORMATION
  Report Type: Report from Study
  Country: JP (occurrence: JP)
  Receive Date: 20240718
  Receipt Date: 20240726
  Transmission Date: 20241016
  Serious: No
  Sender: ABBVIE
  Company Number: JP-ABBVIE-5835574

PATIENT
  Age: 60 Year
  Sex: Female

DRUGS (8)
  1. CARBIDOPA\LEVODOPA [Suspect]
     Active Substance: CARBIDOPA\LEVODOPA
     Indication: Parkinson^s disease
     Route: 050
  2. CARBIDOPA\LEVODOPA [Suspect]
     Active Substance: CARBIDOPA\LEVODOPA
  3. FOSCARBIDOPA\FOSLEVODOPA [Suspect]
     Active Substance: FOSCARBIDOPA\FOSLEVODOPA
     Indication: Parkinson^s disease
     Route: 058
  4. ZONISAMIDE [Concomitant]
     Active Substance: ZONISAMIDE
     Indication: Parkinson^s disease
     Dosage: AT A LEVODOPA EQUIVALENT DAILY DOSE (LEDD) 1027 MG FOR THREE YEARS
     Route: 065
  5. ROPINIROLE HYDROCHLORIDE [Concomitant]
     Active Substance: ROPINIROLE HYDROCHLORIDE
     Indication: Parkinson^s disease
     Route: 065
  6. ROPINIROLE HYDROCHLORIDE [Concomitant]
     Active Substance: ROPINIROLE HYDROCHLORIDE
     Indication: Parkinson^s disease
     Dosage: DOSE DECREASED/AT A LEVODOPA EQUIVALENT DAILY DOSE (LEDD) 1027 MG FOR THREE YEARS
     Route: 065
  7. ISTRADEFYLLINE [Concomitant]
     Active Substance: ISTRADEFYLLINE
     Indication: Parkinson^s disease
     Dosage: AT A LEVODOPA EQUIVALENT DAILY DOSE (LEDD) 1027 MG FOR THREE YEARS
     Route: 065
  8. LEVODOPA [Concomitant]
     Active Substance: LEVODOPA
     Indication: Parkinson^s disease
     Route: 065

REACTIONS (3)
  - Dyskinesia [Unknown]
  - Drug ineffective [Unknown]
  - On and off phenomenon [Unknown]
